FAERS Safety Report 5059822-9 (Version None)
Quarter: 2006Q3

REPORT INFORMATION
  Report Type: 
  Country: None (occurrence: None)
  Receive Date: 20060724
  Receipt Date: 20060426
  Transmission Date: 20061208
  Serious: Yes (Hospitalization, Other)
  Sender: FDA-Public Use
  Company Number: PHNU2006DE01788

PATIENT
  Sex: Male

DRUGS (6)
  1. TEGRETOL [Suspect]
     Indication: EPILEPSY
     Dosage: UNK, UNK
     Route: 048
     Dates: start: 20060101
  2. TEGRETOL [Suspect]
     Dosage: 1.5-0-1.5  / DAY
     Route: 048
     Dates: start: 19900101, end: 20030101
  3. TEGRETOL [Suspect]
     Dosage: 1.5-0-2 / DAY
     Route: 048
     Dates: start: 20040101, end: 20050101
  4. PERENTEROL [Suspect]
  5. LUMINAL [Concomitant]
     Dosage: 0.5-0-0.25 / DAY
  6. RIVOTRIL [Concomitant]

REACTIONS (11)
  - ABDOMINAL PAIN UPPER [None]
  - CONVULSION [None]
  - DERMATITIS ALLERGIC [None]
  - FATIGUE [None]
  - RASH [None]
  - RASH PUSTULAR [None]
  - SKIN HAEMORRHAGE [None]
  - STOMACH DISCOMFORT [None]
  - TESTICULAR NEOPLASM [None]
  - TESTICULAR OPERATION [None]
  - TESTICULAR PAIN [None]
